FAERS Safety Report 19672666 (Version 3)
Quarter: 2021Q4

REPORT INFORMATION
  Report Type: Report from Study
  Country: None (occurrence: ES)
  Receive Date: 20210808
  Receipt Date: 20211006
  Transmission Date: 20220303
  Serious: Yes (Hospitalization, Other)
  Sender: FDA-Public Use
  Company Number: ES-ABBVIE-21K-144-3955457-00

PATIENT
  Age: 73 Year
  Sex: Female

DRUGS (2)
  1. CARBIDOPA\LEVODOPA [Suspect]
     Active Substance: CARBIDOPA\LEVODOPA
     Indication: Parkinson^s disease
     Route: 050
     Dates: start: 20210406, end: 20210611
  2. CARBIDOPA\LEVODOPA [Suspect]
     Active Substance: CARBIDOPA\LEVODOPA
     Dosage: DOSES RAISED
     Route: 050
     Dates: start: 20210611

REACTIONS (7)
  - Decubitus ulcer [Not Recovered/Not Resolved]
  - Clostridial infection [Not Recovered/Not Resolved]
  - Pyrexia [Unknown]
  - Abdominal pain [Unknown]
  - Diarrhoea [Recovering/Resolving]
  - Abdominal distension [Not Recovered/Not Resolved]
  - Device loosening [Unknown]

NARRATIVE: CASE EVENT DATE: 20210101
